FAERS Safety Report 25400572 (Version 1)
Quarter: 2025Q2

REPORT INFORMATION
  Report Type: Spontaneous
  Country: CN (occurrence: CN)
  Receive Date: 20250605
  Receipt Date: 20250605
  Transmission Date: 20250716
  Serious: Yes (Hospitalization)
  Sender: JOHNSON AND JOHNSON
  Company Number: CN-JNJFOC-20250539507

PATIENT
  Age: 22 Year
  Sex: Female

DRUGS (2)
  1. TOPAMAX [Suspect]
     Active Substance: TOPIRAMATE
     Indication: Epilepsy
     Route: 048
     Dates: start: 20250511, end: 20250520
  2. SODIUM VALPROATE SUSTAINED RELEASE TABLETS (II) [Concomitant]
     Indication: Epilepsy
     Route: 048
     Dates: end: 20250520

REACTIONS (2)
  - Drug eruption [Recovering/Resolving]
  - Erythema multiforme [Recovering/Resolving]
